FAERS Safety Report 6316087-5 (Version None)
Quarter: 2009Q3

REPORT INFORMATION
  Report Type: 
  Country: None (occurrence: None)
  Receive Date: 20090819
  Receipt Date: 20090819
  Transmission Date: 20100115
  Serious: No
  Sender: FDA-Public Use
  Company Number: None

PATIENT
  Sex: Female
  Weight: 44.4525 kg

DRUGS (1)
  1. GRIS-PEG [Suspect]
     Indication: ONYCHOMYCOSIS
     Dosage: 2 TABLETS DAILY PO
     Route: 048
     Dates: start: 20090803, end: 20090817

REACTIONS (2)
  - HYPERSENSITIVITY [None]
  - RASH [None]
